FAERS Safety Report 9333924 (Version 2)
Quarter: 2013Q3

REPORT INFORMATION
  Report Type: Spontaneous
  Country: MY (occurrence: MY)
  Receive Date: 20130606
  Receipt Date: 20130712
  Transmission Date: 20140515
  Serious: Yes (Death, Hospitalization)
  Sender: FDA-Public Use
  Company Number: MY-CELGENEUS-101-21880-13043920

PATIENT
  Age: 74 Year
  Sex: Female
  Weight: 36 kg

DRUGS (9)
  1. REVLIMID [Suspect]
     Indication: PLASMA CELL MYELOMA RECURRENT
     Dosage: 15 MILLIGRAM
     Route: 048
     Dates: start: 20130116, end: 20130205
  2. REVLIMID [Suspect]
     Dosage: 15 MILLIGRAM
     Route: 048
     Dates: start: 20130424, end: 20130510
  3. DEXAMETHASONE [Concomitant]
     Indication: PLASMA CELL MYELOMA
     Route: 065
     Dates: start: 20130116, end: 20130510
  4. PANTOPRAZOLE [Concomitant]
     Indication: GASTRITIS
     Dosage: 40 MILLIGRAM
     Route: 065
     Dates: start: 20110802, end: 20120605
  5. OMEPRAZOLE [Concomitant]
     Indication: GASTRITIS
     Dosage: 40 MILLIGRAM
     Route: 065
     Dates: start: 20120606, end: 20120828
  6. RANITIDINE [Concomitant]
     Indication: GASTRITIS
     Dosage: 300 MILLIGRAM
     Route: 065
     Dates: start: 20120829, end: 20130306
  7. EPREX [Concomitant]
     Indication: ANAEMIA
     Dosage: 10000 IU (INTERNATIONAL UNIT)
     Route: 065
     Dates: start: 20121010, end: 20130306
  8. ZOMETA [Concomitant]
     Indication: BONE DISORDER
     Route: 041
     Dates: start: 20120801, end: 20130410
  9. ZOMETA [Concomitant]
     Indication: PLASMA CELL MYELOMA

REACTIONS (4)
  - Plasma cell myeloma [Fatal]
  - Pneumonia [Fatal]
  - Musculoskeletal chest pain [Unknown]
  - Bone pain [Recovered/Resolved with Sequelae]
